FAERS Safety Report 19932682 (Version 1)
Quarter: 2021Q4

REPORT INFORMATION
  Report Type: Spontaneous
  Country: US (occurrence: US)
  Receive Date: 20211007
  Receipt Date: 20211007
  Transmission Date: 20220303
  Serious: Yes (Other)
  Sender: FDA-Public Use
  Company Number: None

PATIENT
  Age: 35 Year
  Sex: Male
  Weight: 55.35 kg

DRUGS (6)
  1. MONTELUKAST SODIUM [Suspect]
     Active Substance: MONTELUKAST SODIUM
     Indication: Asthma
     Dosage: ?          QUANTITY:1 TABLET(S);
     Route: 048
     Dates: start: 20211007, end: 20211007
  2. MONTELUKAST SODIUM [Suspect]
     Active Substance: MONTELUKAST SODIUM
     Indication: Hypersensitivity
  3. BUDESONIDE [Concomitant]
     Active Substance: BUDESONIDE
  4. ASMANEX [Concomitant]
     Active Substance: MOMETASONE FUROATE
  5. ASZALASTINE [Concomitant]
  6. VITAMIN C [Concomitant]
     Active Substance: ASCORBIC ACID

REACTIONS (4)
  - Tremor [None]
  - Muscle spasms [None]
  - Anxiety [None]
  - Nasal congestion [None]

NARRATIVE: CASE EVENT DATE: 20211007
